FAERS Safety Report 15779501 (Version 2)
Quarter: 2019Q2

REPORT INFORMATION
  Report Type: Spontaneous
  Country: US (occurrence: US)
  Receive Date: 20190101
  Receipt Date: 20190416
  Transmission Date: 20190711
  Serious: No
  Sender: FDA-Public Use
  Company Number: PHEH2018US055063

PATIENT
  Sex: Female

DRUGS (1)
  1. EXTAVIA [Suspect]
     Active Substance: INTERFERON BETA-1B
     Indication: PRODUCT USED FOR UNKNOWN INDICATION
     Route: 065

REACTIONS (8)
  - Fall [Unknown]
  - Needle issue [Unknown]
  - Accidental exposure to product [Unknown]
  - Malaise [Unknown]
  - Incorrect dose administered [Unknown]
  - Device leakage [Unknown]
  - Injection site erythema [Unknown]
  - Injection site pain [Unknown]
